FAERS Safety Report 8066244-5 (Version None)
Quarter: 2012Q1

REPORT INFORMATION
  Report Type: 
  Country: None (occurrence: None)
  Receive Date: 20120124
  Receipt Date: 20120117
  Transmission Date: 20120608
  Serious: Yes (Other)
  Sender: FDA-Public Use
  Company Number: JP-ROCHE-1032717

PATIENT
  Sex: Female
  Weight: 55.3 kg

DRUGS (23)
  1. PROGRAF [Concomitant]
     Route: 048
     Dates: start: 20070327
  2. FLUMARIN [Concomitant]
     Route: 042
     Dates: start: 20070327, end: 20070330
  3. URSO 250 [Concomitant]
     Route: 048
     Dates: start: 20070327
  4. SULFAMETHOXAZOLE [Concomitant]
     Route: 048
     Dates: start: 20070327, end: 20070925
  5. NEUART [Concomitant]
     Route: 042
     Dates: start: 20070327, end: 20070330
  6. LANSOPRAZOLE [Concomitant]
     Route: 048
     Dates: start: 20070412, end: 20070418
  7. GANCICLOVIR [Concomitant]
     Route: 042
     Dates: start: 20070327, end: 20070405
  8. MYCOPHENOLATE MOFETIL (CELLCEPT) [Suspect]
     Indication: PROPHYLAXIS AGAINST TRANSPLANT REJECTION
     Route: 048
     Dates: start: 20070327, end: 20070327
  9. OMEPRAZOLE [Concomitant]
     Route: 042
     Dates: start: 20070327, end: 20070411
  10. PLETAL [Concomitant]
     Route: 048
     Dates: start: 20070412
  11. PEG-INTRON [Concomitant]
     Route: 058
     Dates: start: 20070723, end: 20080804
  12. MYCOPHENOLATE MOFETIL (CELLCEPT) [Suspect]
     Route: 048
     Dates: start: 20070328, end: 20070418
  13. SIMULECT [Concomitant]
     Route: 042
     Dates: start: 20070327, end: 20070331
  14. SULBACILLINE [Concomitant]
     Route: 042
     Dates: start: 20070405, end: 20070409
  15. CLINDAMYCIN PHOSPHATE [Concomitant]
     Route: 042
     Dates: start: 20070327, end: 20070330
  16. FUNGUARD [Concomitant]
     Route: 042
     Dates: start: 20070327, end: 20070409
  17. RABEPRAZOLE SODIUM [Concomitant]
     Route: 048
     Dates: start: 20070419, end: 20071015
  18. MYCOPHENOLATE MOFETIL (CELLCEPT) [Suspect]
     Route: 048
     Dates: start: 20070419, end: 20070501
  19. MYCOPHENOLATE MOFETIL (CELLCEPT) [Suspect]
     Route: 048
     Dates: start: 20070502, end: 20081116
  20. MYCOPHENOLATE MOFETIL (CELLCEPT) [Suspect]
     Route: 048
     Dates: start: 20081117
  21. VANCOMYCIN HYDROCHLORIDE [Concomitant]
     Route: 042
     Dates: start: 20070327, end: 20070404
  22. REBETOL [Concomitant]
     Route: 048
     Dates: start: 20070723, end: 20080929
  23. MUCOSTA [Concomitant]
     Route: 048

REACTIONS (2)
  - SPINAL COMPRESSION FRACTURE [None]
  - HYPERTENSION [None]
